FAERS Safety Report 22525803 (Version 2)
Quarter: 2023Q2

REPORT INFORMATION
  Report Type: Spontaneous
  Country: CN (occurrence: CN)
  Receive Date: 20230606
  Receipt Date: 20230620
  Transmission Date: 20230722
  Serious: Yes (Other)
  Sender: FDA-Public Use
  Company Number: CN-ABBVIE-2316107US

PATIENT
  Sex: Male

DRUGS (1)
  1. SILODOSIN [Suspect]
     Active Substance: SILODOSIN
     Indication: Prostatomegaly
     Dosage: DOSE DESC: 1 CAPSULE BID
     Dates: start: 20230312, end: 20230502

REACTIONS (3)
  - Gait disturbance [Unknown]
  - Visual agnosia [Unknown]
  - Cranial nerve paralysis [Unknown]

NARRATIVE: CASE EVENT DATE: 20230502
